FAERS Safety Report 25233623 (Version 1)
Quarter: 2025Q2

REPORT INFORMATION
  Report Type: Spontaneous
  Country: FR (occurrence: FR)
  Receive Date: 20250424
  Receipt Date: 20250424
  Transmission Date: 20250716
  Serious: Yes (Hospitalization)
  Sender: AUROBINDO
  Company Number: FR-AUROBINDO-AUR-APL-2025-020582

PATIENT
  Age: 7 Year
  Sex: Female

DRUGS (18)
  1. RISPERIDONE [Suspect]
     Active Substance: RISPERIDONE
     Indication: Intellectual disability
     Route: 065
  2. RISPERIDONE [Suspect]
     Active Substance: RISPERIDONE
     Indication: Epilepsy
  3. LAMOTRIGINE [Suspect]
     Active Substance: LAMOTRIGINE
     Indication: Intellectual disability
     Route: 065
  4. LAMOTRIGINE [Suspect]
     Active Substance: LAMOTRIGINE
     Indication: Epilepsy
  5. LEVETIRACETAM [Suspect]
     Active Substance: LEVETIRACETAM
     Indication: Intellectual disability
     Route: 065
  6. LEVETIRACETAM [Suspect]
     Active Substance: LEVETIRACETAM
     Indication: Epilepsy
  7. METHYLPHENIDATE [Suspect]
     Active Substance: METHYLPHENIDATE
     Indication: Intellectual disability
     Route: 065
  8. METHYLPHENIDATE [Suspect]
     Active Substance: METHYLPHENIDATE
     Indication: Epilepsy
  9. TOPIRAMATE [Suspect]
     Active Substance: TOPIRAMATE
     Indication: Intellectual disability
     Route: 065
  10. TOPIRAMATE [Suspect]
     Active Substance: TOPIRAMATE
     Indication: Epilepsy
  11. ZONISAMIDE [Suspect]
     Active Substance: ZONISAMIDE
     Indication: Intellectual disability
     Route: 065
  12. ZONISAMIDE [Suspect]
     Active Substance: ZONISAMIDE
     Indication: Epilepsy
  13. MELATONIN [Suspect]
     Active Substance: MELATONIN
     Indication: Intellectual disability
     Route: 065
  14. MELATONIN [Suspect]
     Active Substance: MELATONIN
     Indication: Epilepsy
  15. VALPROIC ACID [Suspect]
     Active Substance: VALPROIC ACID
     Indication: Intellectual disability
     Route: 065
  16. VALPROIC ACID [Suspect]
     Active Substance: VALPROIC ACID
     Indication: Epilepsy
  17. TRIMEPRAZINE [Suspect]
     Active Substance: TRIMEPRAZINE
     Indication: Intellectual disability
     Route: 065
  18. TRIMEPRAZINE [Suspect]
     Active Substance: TRIMEPRAZINE
     Indication: Epilepsy

REACTIONS (1)
  - Drug ineffective [Unknown]
